FAERS Safety Report 6565835-8 (Version None)
Quarter: 2010Q1

REPORT INFORMATION
  Report Type: 
  Country: None (occurrence: None)
  Receive Date: 20100201
  Receipt Date: 20090805
  Transmission Date: 20100710
  Serious: No
  Sender: FDA-Public Use
  Company Number: US-ABBOTT-09P-163-0590103-00

PATIENT
  Sex: Male
  Weight: 71.732 kg

DRUGS (11)
  1. LUPRON DEPOT [Suspect]
     Indication: PROSTATE CANCER
     Route: 058
     Dates: start: 20090615
  2. SYNTHROID [Concomitant]
     Indication: THYROID DISORDER
     Route: 048
  3. LOPRESSOR [Concomitant]
     Indication: CARDIAC DISORDER
     Route: 048
  4. DIOVAN [Concomitant]
     Indication: HYPERTENSION
     Dosage: 80-12.5MG
  5. PRILOSEC [Concomitant]
     Indication: GASTROOESOPHAGEAL REFLUX DISEASE
  6. ZETIA [Concomitant]
     Indication: DRUG USE FOR UNKNOWN INDICATION
  7. ZOCOR [Concomitant]
     Indication: BLOOD CHOLESTEROL
  8. ASPIRIN [Concomitant]
     Indication: DRUG USE FOR UNKNOWN INDICATION
  9. VITAMIN C [Concomitant]
     Indication: VITAMIN SUPPLEMENTATION
  10. VITAMIN B COMPLEX CAP [Concomitant]
     Indication: VITAMIN SUPPLEMENTATION
  11. ALOE VERA [Concomitant]
     Indication: DRUG USE FOR UNKNOWN INDICATION

REACTIONS (3)
  - FEELING ABNORMAL [None]
  - HERNIA [None]
  - HOT FLUSH [None]
